FAERS Safety Report 5331316-2 (Version None)
Quarter: 2007Q2

REPORT INFORMATION
  Report Type: 
  Country: None (occurrence: None)
  Receive Date: 20070301
  Receipt Date: 20050606
  Transmission Date: 20071010
  Serious: Yes (Other)
  Sender: FDA-Public Use
  Company Number: 2581

PATIENT
  Age: 26 Year
  Sex: Female
  Weight: 95 kg

DRUGS (2)
  1. AMNESTEEM [Suspect]
     Indication: ACNE
     Dosage: 40 MG QD PO
     Route: 048
     Dates: start: 20060211
  2. AMNESTEEM [Suspect]
     Indication: ACNE
     Dosage: 80 MG QD PO
     Route: 048
     Dates: start: 20060401

REACTIONS (1)
  - LIP DRY [None]
